FAERS Safety Report 12121475 (Version 1)
Quarter: 2016Q1

REPORT INFORMATION
  Report Type: Spontaneous
  Country: US (occurrence: US)
  Receive Date: 20160226
  Receipt Date: 20160226
  Transmission Date: 20160526
  Serious: No
  Sender: FDA-Public Use
  Company Number: US-ALLERGAN-1306972US

PATIENT
  Age: 74 Year
  Sex: Female

DRUGS (3)
  1. REFRESH OPTIVE [Suspect]
     Active Substance: CARBOXYMETHYLCELLULOSE SODIUM\GLYCERIN
     Indication: DRY EYE
     Dosage: UNK
     Dates: start: 20130507, end: 20130508
  2. SAVARA INHALER [Concomitant]
     Indication: ASTHMA
     Dosage: UNK
  3. METHOTREXATE INJECTION [Concomitant]
     Active Substance: METHOTREXATE
     Indication: ARTHRITIS
     Dosage: UNK UNK, Q WEEK

REACTIONS (1)
  - Vision blurred [Recovered/Resolved]
